FAERS Safety Report 26059923 (Version 1)
Quarter: 2025Q4

REPORT INFORMATION
  Report Type: Spontaneous
  Country: US (occurrence: US)
  Receive Date: 20251118
  Receipt Date: 20251118
  Transmission Date: 20260118
  Serious: Yes (Hospitalization, Other)
  Sender: PFIZER
  Company Number: US-PFIZER INC-PV202500133793

PATIENT
  Age: 70 Year
  Sex: Female

DRUGS (9)
  1. LEVETIRACETAM [Suspect]
     Active Substance: LEVETIRACETAM
     Indication: Seizure prophylaxis
     Dosage: UNK
  2. LITHIUM [Concomitant]
     Active Substance: LITHIUM
     Indication: Mental disorder
     Dosage: 450 MG, 1X/DAY
  3. HALOPERIDOL [Concomitant]
     Active Substance: HALOPERIDOL
     Indication: Mental disorder
     Dosage: 5 MG, 2X/DAY
  4. BENZTROPINE [Concomitant]
     Active Substance: BENZTROPINE
     Indication: Mental disorder
     Dosage: 0.5 MG, 2X/DAY
  5. CLONAZEPAM [Concomitant]
     Active Substance: CLONAZEPAM
     Indication: Mental disorder
     Dosage: 2 MG, 2X/DAY
  6. ZOLPIDEM [Concomitant]
     Active Substance: ZOLPIDEM TARTRATE
     Indication: Mental disorder
     Dosage: 10 MG, 1X/DAY
  7. QUETIAPINE [Concomitant]
     Active Substance: QUETIAPINE
     Indication: Behavioural therapy
     Dosage: UNK
  8. DEXAMETHASONE [Concomitant]
     Active Substance: DEXAMETHASONE
     Indication: Evidence based treatment
     Dosage: UNK
  9. DEXAMETHASONE [Concomitant]
     Active Substance: DEXAMETHASONE
     Indication: Haemorrhage

REACTIONS (4)
  - Encephalopathy [Recovering/Resolving]
  - Sedation [Recovering/Resolving]
  - Agitation [Recovering/Resolving]
  - Off label use [Unknown]
